FAERS Safety Report 7473119-9 (Version None)
Quarter: 2011Q2

REPORT INFORMATION
  Report Type: 
  Country: None (occurrence: None)
  Receive Date: 20110511
  Receipt Date: 20110503
  Transmission Date: 20111010
  Serious: Yes (Other)
  Sender: FDA-Public Use
  Company Number: US-ROCHE-775365

PATIENT
  Sex: Female

DRUGS (5)
  1. ZOMETA [Concomitant]
  2. HERCEPTIN [Suspect]
     Indication: INFLAMMATORY CARCINOMA OF BREAST STAGE IV
     Route: 065
     Dates: start: 20100415
  3. TAMOXIFEN CITRATE [Suspect]
     Route: 065
  4. TAXOL [Concomitant]
     Dosage: FOR 6 MONTHS
  5. CARBOPLATIN [Concomitant]
     Dosage: 2 CYCLES.

REACTIONS (4)
  - HEPATITIS C VIRUS TEST POSITIVE [None]
  - HEPATIC ENZYME INCREASED [None]
  - METASTATIC NEOPLASM [None]
  - METASTASES TO CENTRAL NERVOUS SYSTEM [None]
